FAERS Safety Report 8281610-0 (Version None)
Quarter: 2012Q2

REPORT INFORMATION
  Report Type: 
  Country: None (occurrence: None)
  Receive Date: 20120413
  Receipt Date: 20120411
  Transmission Date: 20120825
  Serious: Yes (Death, Disabling)
  Sender: FDA-Public Use
  Company Number: US-CELGENEUS-163-21880-12022729

PATIENT
  Sex: Male

DRUGS (5)
  1. ASPIRIN [Concomitant]
     Indication: AMYLOIDOSIS
     Dosage: 81
     Route: 048
     Dates: start: 20110509
  2. REVLIMID [Suspect]
     Dosage: 5 MILLIGRAM
     Route: 048
     Dates: start: 20120101, end: 20120222
  3. REVLIMID [Suspect]
     Indication: MULTIPLE MYELOMA
     Dosage: 5 MILLIGRAM
     Route: 048
     Dates: start: 20110909, end: 20111101
  4. REVLIMID [Suspect]
     Dosage: 10 MILLIGRAM
     Route: 048
     Dates: start: 20111101
  5. DEXAMETHASONE [Concomitant]
     Indication: AMYLOIDOSIS
     Dosage: 16 MILLIGRAM
     Route: 048
     Dates: start: 20110509

REACTIONS (1)
  - AMYLOIDOSIS [None]
